FAERS Safety Report 17523164 (Version 1)
Quarter: 2020Q1

REPORT INFORMATION
  Report Type: Spontaneous
  Country: GB (occurrence: GB)
  Receive Date: 20200311
  Receipt Date: 20200311
  Transmission Date: 20200409
  Serious: Yes (Other)
  Sender: FDA-Public Use
  Company Number: GB-SUN PHARMACEUTICAL INDUSTRIES LTD-2020RR-239981

PATIENT
  Age: 39 Year
  Sex: Female
  Weight: 83 kg

DRUGS (2)
  1. CODEINE [Suspect]
     Active Substance: CODEINE
     Indication: PRODUCT USED FOR UNKNOWN INDICATION
     Dosage: ONE OR TWO TO BE TAKEN FOUR TIMES A DAY. MAXIMUM 8 IN 24 HOURS () ; AS NECESSARY
     Route: 065
     Dates: start: 20200131, end: 20200210
  2. FLUOXETINE [Concomitant]
     Active Substance: FLUOXETINE HYDROCHLORIDE
     Indication: PRODUCT USED FOR UNKNOWN INDICATION
     Dosage: ONE DAILY REDUCING AS DIRECTED ()
     Route: 065
     Dates: start: 20200131

REACTIONS (2)
  - Urticaria [Recovered/Resolved]
  - Swelling [Recovered/Resolved]

NARRATIVE: CASE EVENT DATE: 20200207
